FAERS Safety Report 11340632 (Version 1)
Quarter: 2015Q3

REPORT INFORMATION
  Report Type: Spontaneous
  Country: US (occurrence: None)
  Receive Date: 20150803
  Receipt Date: 20150803
  Transmission Date: 20151125
  Serious: Yes (Other)
  Sender: FDA-Public Use
  Company Number: None

PATIENT
  Age: 31 Year
  Sex: Female
  Weight: 58.97 kg

DRUGS (1)
  1. UP AND UP MICONAZOLE [Suspect]
     Active Substance: MICONAZOLE NITRATE
     Indication: FUNGAL INFECTION
     Dosage: 1 PILL
     Route: 067
     Dates: start: 20150730

REACTIONS (3)
  - Application site pain [None]
  - Application site swelling [None]
  - Gait disturbance [None]

NARRATIVE: CASE EVENT DATE: 20150730
